FAERS Safety Report 21903331 (Version 2)
Quarter: 2023Q1

REPORT INFORMATION
  Report Type: Spontaneous
  Country: US (occurrence: US)
  Receive Date: 20230124
  Receipt Date: 20230208
  Transmission Date: 20230418
  Serious: No
  Sender: FDA-Public Use
  Company Number: US-SA-SAC20230120001699

PATIENT
  Age: 73 Year
  Sex: Female

DRUGS (1)
  1. DUPIXENT [Suspect]
     Active Substance: DUPILUMAB
     Indication: Dermatitis atopic
     Dosage: UNK
     Route: 058
     Dates: start: 20221229

REACTIONS (13)
  - Bronchitis [Unknown]
  - Anxiety [Unknown]
  - Erythema [Unknown]
  - Sleep disorder [Recovered/Resolved]
  - Feeling hot [Unknown]
  - Scratch [Unknown]
  - Cough [Not Recovered/Not Resolved]
  - Burning sensation [Unknown]
  - Injection site mass [Recovered/Resolved]
  - Pruritus [Not Recovered/Not Resolved]
  - Sinus operation [Unknown]
  - Dermatitis atopic [Recovered/Resolved]
  - Dermatitis atopic [Not Recovered/Not Resolved]

NARRATIVE: CASE EVENT DATE: 20221230
